FAERS Safety Report 20383067 (Version 3)
Quarter: 2022Q1

REPORT INFORMATION
  Report Type: Report from Study
  Country: US (occurrence: US)
  Receive Date: 20220127
  Receipt Date: 20220225
  Transmission Date: 20220424
  Serious: Yes (Death)
  Sender: FDA-Public Use
  Company Number: US-NOVARTISPH-NVSC2022US014799

PATIENT
  Sex: Female

DRUGS (3)
  1. AFINITOR [Suspect]
     Active Substance: EVEROLIMUS
     Indication: Small intestine carcinoma
     Dosage: 10 MG, QD
     Route: 048
     Dates: start: 20201217, end: 20210505
  2. AFINITOR [Suspect]
     Active Substance: EVEROLIMUS
     Indication: Metastases to biliary tract
  3. AFINITOR [Suspect]
     Active Substance: EVEROLIMUS
     Indication: Metastases to liver

REACTIONS (4)
  - Small intestine carcinoma [Fatal]
  - Metastases to biliary tract [Fatal]
  - Metastases to liver [Fatal]
  - Malignant neoplasm progression [Fatal]
